FAERS Safety Report 9542607 (Version 4)
Quarter: 2014Q1

REPORT INFORMATION
  Report Type: Spontaneous
  Country: US (occurrence: US)
  Receive Date: 20130923
  Receipt Date: 20140314
  Transmission Date: 20141002
  Serious: Yes (Other)
  Sender: FDA-Public Use
  Company Number: US-PFIZER INC-2013271141

PATIENT
  Age: 55 Year
  Sex: Female
  Weight: 108.84 kg

DRUGS (24)
  1. LYRICA [Suspect]
     Indication: FIBROMYALGIA
     Dosage: 50 MG, 2X/DAY
     Route: 048
  2. LYRICA [Suspect]
     Dosage: STRENGTH: 50; 1 AM, 1 PM
     Route: 048
  3. LYRICA [Suspect]
     Dosage: 100 MG, 1X/DAY (HS)
     Route: 048
  4. CELEBREX [Suspect]
     Indication: OSTEOARTHRITIS
     Dosage: 400 MG (BY TAKING 2 CAPSULES OF 200MG), 1X/DAY
     Route: 048
     Dates: end: 201309
  5. CELEBREX [Suspect]
     Dosage: STRENGTH: 200; ONE TWICE DAILY
     Route: 048
  6. CELEBREX [Suspect]
     Dosage: 2 DF (2 CAPS), 1X/DAY (A.M)
     Route: 048
  7. VALTREX [Suspect]
     Dosage: STRENGTH: 500; ONE 3X/DAY
  8. VALTREX [Suspect]
     Dosage: 500 MG DAILY DOSE, AS NEEDED (2 AM AND PRN)
  9. ZOLOFT [Concomitant]
     Indication: DEPRESSION
     Dosage: 200 MG, 1X/DAY (HS)
  10. BUSPAR [Concomitant]
     Dosage: 30 MG, 2X/DAY
  11. AMRIX [Concomitant]
     Dosage: 1-2 CAPS, 1X/DAY (HS)
  12. FLEXERIL [Concomitant]
     Dosage: 20 MG, 2X/DAY
  13. ASPIRIN [Concomitant]
     Dosage: 81 MG, 1X/DAY (HS)
  14. DESYREL [Concomitant]
     Dosage: 200 MG, 1X/DAY (HS)
  15. PREVACID [Concomitant]
     Dosage: 1 DF (1 CAP), 1X/DAY (HS)
  16. VYTORIN [Concomitant]
     Dosage: 10/20 DAILY DOSE HS
  17. ATIVAN [Concomitant]
     Dosage: 3-4 MG, AS NEEDED (HS AND PRN)
  18. SINGULAIR [Concomitant]
     Dosage: 10 MG, HS/SEASONAL
  19. LIQUID TYLENOL [Concomitant]
     Dosage: 2 TBSP, AS NEEDED (PRN)
  20. LIQUID TYLENOL [Concomitant]
     Dosage: 2 PUFFS AS NEEDED
  21. DARVOCET [Concomitant]
     Dosage: 1 DF (1 CAP), AS NEEDED (PRN)
  22. DILAUDID [Concomitant]
     Dosage: 2 MG, AS NEEDED (PRN/QID)
  23. PROVENTIL [Concomitant]
     Dosage: 2 PUFFS, AS NEEDED (PRN OR BID)
  24. AZMACORT [Concomitant]
     Dosage: 1 PUFF, AS NEEDED (PRN OR BID)

REACTIONS (10)
  - Foot deformity [Unknown]
  - Ligament sprain [Unknown]
  - Arthropathy [Unknown]
  - Activities of daily living impaired [Unknown]
  - Fall [Unknown]
  - Liver function test abnormal [Unknown]
  - Arthralgia [Unknown]
  - Limb discomfort [Unknown]
  - Musculoskeletal pain [Unknown]
  - Weight increased [Unknown]
